FAERS Safety Report 7378668-X (Version None)
Quarter: 2011Q1

REPORT INFORMATION
  Report Type: 
  Country: None (occurrence: None)
  Receive Date: 20110328
  Receipt Date: 20110318
  Transmission Date: 20110831
  Serious: Yes (Other)
  Sender: FDA-Public Use
  Company Number: US-ASTRAZENECA-2011SE15853

PATIENT
  Age: 74 Year
  Sex: Female

DRUGS (7)
  1. PLAVIX [Concomitant]
     Dates: start: 19970101
  2. PEPCID [Concomitant]
  3. CRESTOR [Concomitant]
     Route: 048
  4. NEXIUM [Suspect]
     Indication: GASTROOESOPHAGEAL REFLUX DISEASE
     Route: 048
     Dates: start: 20020101, end: 20110101
  5. ZESTRIL [Suspect]
     Route: 048
     Dates: end: 20090101
  6. MOBIC [Concomitant]
     Dates: end: 20090101
  7. NEXIUM [Suspect]
     Indication: ULCER
     Route: 048
     Dates: start: 20020101, end: 20110101

REACTIONS (3)
  - RENAL FAILURE [None]
  - DYSPEPSIA [None]
  - ABDOMINAL PAIN UPPER [None]
